FAERS Safety Report 20589470 (Version 12)
Quarter: 2022Q3

REPORT INFORMATION
  Report Type: Report from Study
  Country: US (occurrence: US)
  Receive Date: 20220314
  Receipt Date: 20220926
  Transmission Date: 20221027
  Serious: Yes (Disabling, Other)
  Sender: FDA-Public Use
  Company Number: US-NOVARTISTESTPH-NVSC2022US057604

PATIENT
  Age: 75 Year
  Sex: Male
  Weight: 84.5 kg

DRUGS (8)
  1. ENTRESTO [Suspect]
     Active Substance: SACUBITRIL\VALSARTAN
     Indication: Cardiac failure
     Dosage: 1 DOSAGE FORM, BID
     Route: 048
     Dates: start: 20211201
  2. ENTRESTO [Suspect]
     Active Substance: SACUBITRIL\VALSARTAN
     Dosage: UNK, UNKNOWN
     Route: 048
  3. ENTRESTO [Suspect]
     Active Substance: SACUBITRIL\VALSARTAN
     Dosage: 1 DOSAGE FORM, BID
     Route: 048
  4. ISOSORBIDE [Suspect]
     Active Substance: ISOSORBIDE
     Indication: Heart rate decreased
     Dosage: UNK
     Route: 065
  5. COUMADIN [Suspect]
     Active Substance: WARFARIN SODIUM
     Indication: International normalised ratio abnormal
     Dosage: UNK, UNKNOWN
     Route: 065
  6. ELIQUIS [Suspect]
     Active Substance: APIXABAN
     Indication: International normalised ratio abnormal
     Dosage: UNK, UNKNOWN
     Route: 065
     Dates: start: 202203
  7. PLAVIX [Suspect]
     Active Substance: CLOPIDOGREL BISULFATE
     Indication: Product used for unknown indication
     Dosage: UNK UNK, UNKNOWN
     Route: 065
  8. ASPIRIN [Suspect]
     Active Substance: ASPIRIN
     Indication: Product used for unknown indication
     Dosage: UNK, UNKNOWN
     Route: 065

REACTIONS (22)
  - Hypoacusis [Not Recovered/Not Resolved]
  - Visual impairment [Not Recovered/Not Resolved]
  - Rhabdomyolysis [Unknown]
  - International normalised ratio abnormal [Unknown]
  - Sneezing [Unknown]
  - Nasopharyngitis [Unknown]
  - Balance disorder [Unknown]
  - Malaise [Unknown]
  - Mood altered [Unknown]
  - Bowel movement irregularity [Unknown]
  - Brain natriuretic peptide increased [Unknown]
  - Hypokinesia [Unknown]
  - Fall [Unknown]
  - Depressed mood [Unknown]
  - Dyspnoea [Unknown]
  - Emphysema [Unknown]
  - Blood cholesterol increased [Unknown]
  - Anxiety disorder [Not Recovered/Not Resolved]
  - Muscle spasms [Unknown]
  - Nervousness [Not Recovered/Not Resolved]
  - Dizziness postural [Unknown]
  - Hypotension [Unknown]

NARRATIVE: CASE EVENT DATE: 20211201
